FAERS Safety Report 8287540-2 (Version None)
Quarter: 2012Q2

REPORT INFORMATION
  Report Type: 
  Country: None (occurrence: None)
  Receive Date: 20120411
  Receipt Date: 20120411
  Transmission Date: 20120825
  Serious: Yes (Other)
  Sender: FDA-Public Use
  Company Number: None

PATIENT

DRUGS (1)
  1. VELCADE [Suspect]

REACTIONS (3)
  - FATIGUE [None]
  - NAUSEA [None]
  - DECREASED APPETITE [None]
